FAERS Safety Report 5197447-5 (Version None)
Quarter: 2006Q4

REPORT INFORMATION
  Report Type: 
  Country: None (occurrence: None)
  Receive Date: 20061227
  Receipt Date: 20061212
  Transmission Date: 20070319
  Serious: Yes (Hospitalization)
  Sender: FDA-Public Use
  Company Number: 2006151452

PATIENT
  Age: 62 Year
  Sex: Male

DRUGS (6)
  1. SU-011,248 (SUNITINIB MALATE) [Suspect]
     Indication: RENAL CELL CARCINOMA STAGE UNSPECIFIED
     Dosage: 50 MG (50 MG, QD), ORAL
     Route: 048
     Dates: start: 20061012, end: 20061205
  2. MORPHINE [Concomitant]
  3. GABAPENTIN [Concomitant]
  4. OMEPRAZOLE [Concomitant]
  5. EUTIROX (LEVOTHYROXINE) [Concomitant]
  6. TAMSULOSIN HCL [Concomitant]

REACTIONS (6)
  - AMMONIA INCREASED [None]
  - BLOOD CREATINE INCREASED [None]
  - CONVULSION [None]
  - HYPOALBUMINAEMIA [None]
  - RESPIRATORY FAILURE [None]
  - SEPSIS [None]
